FAERS Safety Report 8424920-6 (Version None)
Quarter: 2012Q2

REPORT INFORMATION
  Report Type: 
  Country: None (occurrence: None)
  Receive Date: 20120611
  Receipt Date: 20120609
  Transmission Date: 20120825
  Serious: No
  Sender: FDA-Public Use
  Company Number: US-PFIZER INC-2012138856

PATIENT
  Sex: Female
  Weight: 72.562 kg

DRUGS (6)
  1. NEURONTIN [Concomitant]
     Dosage: UNK
  2. GEODON [Suspect]
     Indication: BIPOLAR DISORDER
     Dosage: 60 MG, 3X/DAY
     Route: 048
     Dates: start: 20120608
  3. METFORMIN [Concomitant]
     Indication: TYPE 2 DIABETES MELLITUS
     Dosage: UNK
  4. LANTUS [Concomitant]
     Indication: TYPE 2 DIABETES MELLITUS
     Dosage: UNK
  5. NOVOLOG [Concomitant]
     Indication: TYPE 2 DIABETES MELLITUS
     Dosage: UNK
  6. ZYPREXA [Concomitant]
     Dosage: UNK

REACTIONS (1)
  - FATIGUE [None]
